FAERS Safety Report 14047616 (Version 1)
Quarter: 2017Q4

REPORT INFORMATION
  Report Type: Spontaneous
  Country: FR (occurrence: FR)
  Receive Date: 20171005
  Receipt Date: 20171005
  Transmission Date: 20180321
  Serious: Yes (Other)
  Sender: FDA-Public Use
  Company Number: FR-IPSEN BIOPHARMACEUTICALS, INC.-2017-11107

PATIENT
  Age: 59 Year
  Sex: Female

DRUGS (1)
  1. SOMATULINE L.P. 120MG [Suspect]
     Active Substance: LANREOTIDE ACETATE
     Indication: NEUROENDOCRINE TUMOUR
     Dosage: 120 MG
     Route: 058
     Dates: start: 201702, end: 201706

REACTIONS (3)
  - Malaise [Unknown]
  - Hyperinsulinaemic hypoglycaemia [Recovering/Resolving]
  - Insulinoma [Unknown]

NARRATIVE: CASE EVENT DATE: 201702
